FAERS Safety Report 12833165 (Version 1)
Quarter: 2016Q4

REPORT INFORMATION
  Report Type: Spontaneous
  Country: JP (occurrence: JP)
  Receive Date: 20161010
  Receipt Date: 20161010
  Transmission Date: 20170207
  Serious: Yes (Other)
  Sender: FDA-Public Use
  Company Number: JP-ROCHE-1840251

PATIENT
  Age: 58 Year
  Sex: Male

DRUGS (1)
  1. ACTILYSE [Suspect]
     Active Substance: ALTEPLASE
     Indication: CAROTID ARTERY OCCLUSION
     Route: 042

REACTIONS (2)
  - Carotid artery stenosis [Recovered/Resolved]
  - Nervous system disorder [Unknown]
